FAERS Safety Report 4708623-7 (Version None)
Quarter: 2005Q3

REPORT INFORMATION
  Report Type: 
  Country: None (occurrence: None)
  Receive Date: 20050706
  Receipt Date: 20050621
  Transmission Date: 20060218
  Serious: Yes (Hospitalization)
  Sender: FDA-Public Use
  Company Number: 2005US000821

PATIENT
  Age: 46 Year
  Sex: Male

DRUGS (1)
  1. PROGRAF [Suspect]
     Indication: PROPHYLAXIS AGAINST TRANSPLANT REJECTION
     Dosage: 4.00 MG, UID/QD, ORAL
     Route: 048

REACTIONS (3)
  - GUILLAIN-BARRE SYNDROME [None]
  - MILLER FISHER SYNDROME [None]
  - SINUS ARREST [None]
